FAERS Safety Report 16369339 (Version 2)
Quarter: 2019Q3

REPORT INFORMATION
  Report Type: Spontaneous
  Country: GB (occurrence: GB)
  Receive Date: 20190529
  Receipt Date: 20190709
  Transmission Date: 20191004
  Serious: Yes (Death, Other)
  Sender: FDA-Public Use
  Company Number: GB-BEH-2019100318

PATIENT
  Age: 78 Year
  Sex: Female
  Weight: 72 kg

DRUGS (5)
  1. APIXABAN [Concomitant]
     Active Substance: APIXABAN
     Route: 065
  2. BERINERT [Suspect]
     Active Substance: HUMAN C1-ESTERASE INHIBITOR
     Indication: PROCOAGULANT THERAPY
     Dosage: 1500 IU, UNK
     Route: 065
     Dates: start: 20190305, end: 20190305
  3. BERINERT [Suspect]
     Active Substance: HUMAN C1-ESTERASE INHIBITOR
     Indication: WRONG PRODUCT ADMINISTERED
  4. BERINERT [Suspect]
     Active Substance: HUMAN C1-ESTERASE INHIBITOR
     Indication: WRONG PRODUCT ADMINISTERED
  5. BERINERT [Suspect]
     Active Substance: HUMAN C1-ESTERASE INHIBITOR
     Indication: PROCOAGULANT THERAPY
     Dosage: 1500 IU, UNK
     Route: 065
     Dates: start: 20190305, end: 20190305

REACTIONS (5)
  - Wrong product administered [Fatal]
  - General physical health deterioration [Fatal]
  - Anastomotic leak [Fatal]
  - No adverse event [Unknown]
  - Product use in unapproved indication [Unknown]

NARRATIVE: CASE EVENT DATE: 201903
